FAERS Safety Report 9283794 (Version 1)
Quarter: 2013Q2

REPORT INFORMATION
  Report Type: Spontaneous
  Country: US (occurrence: US)
  Receive Date: 20130510
  Receipt Date: 20130510
  Transmission Date: 20140414
  Serious: Yes (Other)
  Sender: FDA-Public Use
  Company Number: US-BAYER-2013-056320

PATIENT
  Age: 69 Year
  Sex: Female
  Weight: 63.49 kg

DRUGS (1)
  1. PHILLIPS^ MILK OF MAGNESIA [Suspect]
     Indication: CONSTIPATION
     Dosage: 2 - 3 TABLE SPOON PRN
     Route: 048
     Dates: start: 1987, end: 1987

REACTIONS (2)
  - Aphagia [Recovered/Resolved]
  - Vomiting [Recovered/Resolved]
